FAERS Safety Report 6760855-2 (Version None)
Quarter: 2010Q2

REPORT INFORMATION
  Report Type: 
  Country: None (occurrence: None)
  Receive Date: 20100608
  Receipt Date: 20100527
  Transmission Date: 20101027
  Serious: Yes (Hospitalization)
  Sender: FDA-Public Use
  Company Number: PHHY2010DE34663

PATIENT
  Sex: Female
  Weight: 58 kg

DRUGS (6)
  1. FLUVASTATIN SODIUM [Suspect]
     Indication: HYPERCHOLESTEROLAEMIA
     Dosage: 40 MG PER DAY
     Route: 048
     Dates: start: 20091112
  2. NO TREATMENT RECEIVED NOMED [Suspect]
     Dosage: UNK
  3. ATACAND [Suspect]
     Indication: HYPERTENSION
     Dosage: UNK
     Dates: start: 20090227
  4. LISINOPRIL AND HYDROCHLOROTHIAZIDE [Concomitant]
     Indication: HYPERTENSION
     Dosage: 20 MG PER DAY
     Dates: start: 20080527
  5. NITRAZEPAM [Concomitant]
     Indication: SLEEP DISORDER
     Dosage: 5 MG PER DAY
     Dates: start: 20100420
  6. CALCIUM CHANNEL BLOCKERS [Concomitant]

REACTIONS (1)
  - HYPERTENSION [None]
